FAERS Safety Report 5752865-9 (Version None)
Quarter: 2008Q2

REPORT INFORMATION
  Report Type: 
  Country: None (occurrence: None)
  Receive Date: 20080529
  Receipt Date: 20080528
  Transmission Date: 20081010
  Serious: Yes (Disabling)
  Sender: FDA-Public Use
  Company Number: KR-BOEHRINGER INGELHEIM GMBH, GERMANY-2008-DE-02674GD

PATIENT
  Age: 25 Year
  Sex: Female

DRUGS (3)
  1. HYDROCORTISONE [Suspect]
     Indication: PROPHYLACTIC CHEMOTHERAPY
     Route: 037
  2. METHOTREXATE [Suspect]
     Indication: PROPHYLACTIC CHEMOTHERAPY
     Route: 037
  3. CYTARABINE [Suspect]
     Indication: PROPHYLACTIC CHEMOTHERAPY
     Route: 037

REACTIONS (4)
  - AREFLEXIA [None]
  - PARAPLEGIA [None]
  - SPINAL CORD DISORDER [None]
  - URINARY RETENTION [None]
